FAERS Safety Report 12180957 (Version 1)
Quarter: 2016Q1

REPORT INFORMATION
  Report Type: Spontaneous
  Country: CA (occurrence: CA)
  Receive Date: 20160315
  Receipt Date: 20160315
  Transmission Date: 20160526
  Serious: Yes (Other)
  Sender: FDA-Public Use
  Company Number: CA-EDGEWELL PERSONAL CARE, LLC-1049099

PATIENT
  Age: 24 Month
  Sex: Male

DRUGS (1)
  1. BANANA BOAT (AVOBENZONE\HOMOSALATE\OCTISALATE\OCTOCRYLENE) [Suspect]
     Active Substance: AVOBENZONE\HOMOSALATE\OCTISALATE\OCTOCRYLENE
     Indication: HYPERSENSITIVITY
     Route: 061
     Dates: start: 20150507, end: 20150507

REACTIONS (4)
  - Eye swelling [None]
  - Dermatitis [None]
  - Application site swelling [None]
  - Hypersensitivity [Recovered/Resolved]

NARRATIVE: CASE EVENT DATE: 20150507
